FAERS Safety Report 4938930-4 (Version None)
Quarter: 2006Q1

REPORT INFORMATION
  Report Type: 
  Country: None (occurrence: None)
  Receive Date: 20060306
  Receipt Date: 20060221
  Transmission Date: 20060701
  Serious: No
  Sender: FDA-Public Use
  Company Number: 006744

PATIENT
  Age: 17 Year
  Sex: Female

DRUGS (3)
  1. CLARAVIS [Suspect]
     Indication: ACNE
     Dosage: 40 MG, QOD, ORAL; 80 MG, QOD, ORAL
     Route: 048
     Dates: start: 20051221, end: 20060220
  2. CLARAVIS [Suspect]
     Indication: ACNE
     Dosage: 40 MG, QOD, ORAL; 80 MG, QOD, ORAL
     Route: 048
     Dates: start: 20051221, end: 20060220
  3. OCAL CONTRACEPTIVE NOS (ORAL CONTRACEPTIVE NOS) [Concomitant]

REACTIONS (3)
  - DEPRESSION [None]
  - MOOD SWINGS [None]
  - STRESS [None]
